FAERS Safety Report 11139561 (Version 1)
Quarter: 2015Q2

REPORT INFORMATION
  Report Type: Spontaneous
  Country: US (occurrence: US)
  Receive Date: 20150527
  Receipt Date: 20150527
  Transmission Date: 20150821
  Serious: Yes (Other)
  Sender: FDA-Public Use
  Company Number: US-PFIZER INC-2015175889

PATIENT
  Sex: Male

DRUGS (9)
  1. COQ 10 [Suspect]
     Active Substance: UBIDECARENONE
     Dosage: UNK, 1X/DAY
  2. OMEGA 3 [Suspect]
     Active Substance: OMEGA-3 FATTY ACIDS
     Dosage: UNK, 1X/DAY
  3. XARELTO [Suspect]
     Active Substance: RIVAROXABAN
     Dosage: UNK, 1X/DAY
  4. SOTALOL. [Suspect]
     Active Substance: SOTALOL
     Dosage: UNK, 1X/DAY
  5. KRILL OIL [Suspect]
     Active Substance: DIETARY SUPPLEMENT
     Dosage: UNK, 1X/DAY
  6. PRISTIQ EXTENDED RELEASE [Suspect]
     Active Substance: DESVENLAFAXINE SUCCINATE
     Dosage: 50 MG, 1X/DAY
  7. METFORMIN [Suspect]
     Active Substance: METFORMIN HYDROCHLORIDE
     Dosage: UNK, 1X/DAY
  8. NATURAL SUPER PROSTATE [Suspect]
     Active Substance: HERBALS
     Dosage: UNK, 1X/DAY
  9. MAGNESIUM [Suspect]
     Active Substance: MAGNESIUM
     Dosage: UNK, 1X/DAY

REACTIONS (1)
  - Suicidal ideation [Unknown]
